FAERS Safety Report 22647719 (Version 1)
Quarter: 2023Q2

REPORT INFORMATION
  Report Type: Other
  Country: IT (occurrence: None)
  Receive Date: 20230628
  Receipt Date: 20230628
  Transmission Date: 20230722
  Serious: Yes (Other)
  Sender: FDA-Public Use
  Company Number: IT-ROCHE-3376837

PATIENT
  Age: 60 Year
  Sex: Male

DRUGS (2)
  1. RITUXIMAB [Suspect]
     Active Substance: RITUXIMAB
     Indication: Anti-myelin-associated glycoprotein associated polyneuropathy
     Dosage: AT DAY 1 AND DAY 15
     Route: 042
  2. METHYLPREDNISOLONE [Suspect]
     Active Substance: METHYLPREDNISOLONE
     Indication: Anti-myelin-associated glycoprotein associated polyneuropathy
     Dosage: 500 MG/DIE FOR 5 DAYS
     Route: 042

REACTIONS (1)
  - Guillain-Barre syndrome [Unknown]
